FAERS Safety Report 9434386 (Version 2)
Quarter: 2013Q3

REPORT INFORMATION
  Report Type: Spontaneous
  Country: JP (occurrence: JP)
  Receive Date: 20130801
  Receipt Date: 20130814
  Transmission Date: 20140515
  Serious: Yes (Hospitalization)
  Sender: FDA-Public Use
  Company Number: JP-JNJFOC-20130716257

PATIENT
  Age: 64 Year
  Sex: Male
  Weight: 55 kg

DRUGS (16)
  1. REMICADE [Suspect]
     Indication: RHEUMATOID ARTHRITIS
     Route: 042
     Dates: start: 20030826
  2. REMICADE [Suspect]
     Indication: RHEUMATOID ARTHRITIS
     Dosage: PATIENT COMPLETED 67 INFUSIONS.
     Route: 042
     Dates: start: 20130710
  3. REMICADE [Suspect]
     Indication: RHEUMATOID ARTHRITIS
     Route: 042
     Dates: start: 20031128
  4. REMICADE [Suspect]
     Indication: RHEUMATOID ARTHRITIS
     Route: 042
     Dates: start: 20030710
  5. RHEUMATREX [Suspect]
     Indication: RHEUMATOID ARTHRITIS
     Dosage: DOSE: 8MG/WEEK
     Route: 048
     Dates: start: 20021022, end: 20130720
  6. PREDNISOLONE [Suspect]
     Indication: RHEUMATOID ARTHRITIS
     Route: 048
     Dates: start: 20020628
  7. PREDNISOLONE [Suspect]
     Indication: RHEUMATOID ARTHRITIS
     Route: 048
     Dates: start: 20020628
  8. FERROMIA [Suspect]
     Indication: IRON DEFICIENCY ANAEMIA
     Route: 048
     Dates: end: 20130720
  9. GASLON N [Concomitant]
     Indication: GASTRITIS
     Route: 048
  10. METHYCOBAL [Concomitant]
     Indication: NEUROPATHY PERIPHERAL
     Route: 048
  11. BLOSTAR M [Concomitant]
     Indication: GASTRITIS
     Route: 048
  12. BAKUMONDOUTO [Concomitant]
     Indication: COUGH
     Route: 048
     Dates: end: 20130720
  13. EDIROL [Concomitant]
     Indication: OSTEOPOROSIS
     Route: 048
  14. FOLIAMIN [Concomitant]
     Indication: RHEUMATOID ARTHRITIS
     Dosage: DOSE: 5MG/WEEK
     Route: 048
     Dates: end: 20130720
  15. ACTONEL [Concomitant]
     Indication: OSTEOPOROSIS
     Dosage: DOSE: 17.5 MG/WEEK
     Route: 065
     Dates: end: 20130720
  16. RIKKUNSHI-TO [Concomitant]
     Indication: GASTRITIS
     Route: 048
     Dates: end: 20130720

REACTIONS (1)
  - Listeria sepsis [Recovering/Resolving]
